FAERS Safety Report 18319170 (Version 1)
Quarter: 2020Q3

REPORT INFORMATION
  Report Type: Spontaneous
  Country: US (occurrence: US)
  Receive Date: 20200928
  Receipt Date: 20200928
  Transmission Date: 20201103
  Serious: Yes (Hospitalization)
  Sender: FDA-Public Use
  Company Number: None

PATIENT
  Age: 83 Year
  Sex: Male

DRUGS (1)
  1. APIXABAN [Suspect]
     Active Substance: APIXABAN
     Route: 048

REACTIONS (4)
  - Urinary tract infection [None]
  - Haematuria [None]
  - Haemorrhage urinary tract [None]
  - Escherichia infection [None]

NARRATIVE: CASE EVENT DATE: 20191204
